FAERS Safety Report 24702975 (Version 1)
Quarter: 2024Q4

REPORT INFORMATION
  Report Type: Spontaneous
  Country: CH (occurrence: CH)
  Receive Date: 20241205
  Receipt Date: 20241205
  Transmission Date: 20250115
  Serious: Yes (Death, Other)
  Sender: GILEAD
  Company Number: CH-GILEAD-2024-0695997

PATIENT
  Age: 61 Year
  Sex: Female

DRUGS (1)
  1. YESCARTA [Suspect]
     Active Substance: AXICABTAGENE CILOLEUCEL
     Indication: Diffuse large B-cell lymphoma
     Dosage: UNK
     Route: 042
     Dates: start: 202206, end: 202206

REACTIONS (11)
  - Staphylococcal infection [Fatal]
  - Klebsiella infection [Fatal]
  - Cytomegalovirus infection [Fatal]
  - Candida infection [Fatal]
  - Trichosporon infection [Fatal]
  - Aspergillus infection [Fatal]
  - Cytokine release syndrome [Unknown]
  - Immune effector cell-associated neurotoxicity syndrome [Unknown]
  - Immune effector cell-associated HLH-like syndrome [Unknown]
  - Neutropenia [Unknown]
  - Lymphopenia [Unknown]
